FAERS Safety Report 23522426 (Version 1)
Quarter: 2024Q1

REPORT INFORMATION
  Report Type: Report from Study
  Country: CA (occurrence: CA)
  Receive Date: 20240214
  Receipt Date: 20240214
  Transmission Date: 20240409
  Serious: Yes (Other)
  Sender: FDA-Public Use
  Company Number: CA-JNJFOC-20230812947

PATIENT
  Age: 6 Decade
  Sex: Female

DRUGS (2)
  1. SIMPONI [Suspect]
     Active Substance: GOLIMUMAB
     Indication: Rheumatoid arthritis
     Route: 058
     Dates: start: 20220909
  2. METHOTREXATE [Suspect]
     Active Substance: METHOTREXATE
     Route: 065

REACTIONS (5)
  - Synovial rupture [Not Recovered/Not Resolved]
  - Meniscus injury [Unknown]
  - Joint swelling [Not Recovered/Not Resolved]
  - Upper respiratory tract infection [Unknown]
  - Intentional product use issue [Unknown]
